FAERS Safety Report 22219493 (Version 1)
Quarter: 2023Q2

REPORT INFORMATION
  Report Type: Report from Study
  Country: IT (occurrence: IT)
  Receive Date: 20230417
  Receipt Date: 20230417
  Transmission Date: 20230721
  Serious: Yes (Hospitalization)
  Sender: FDA-Public Use
  Company Number: None

PATIENT
  Age: 20 Year
  Sex: Female

DRUGS (4)
  1. MIRTAZAPINE [Suspect]
     Active Substance: MIRTAZAPINE
     Indication: Intentional self-injury
     Dosage: FREQUENCY OF ADMINISTRATION: TOTAL ROUTE OF ADMINISTRATION: ORAL
     Route: 048
     Dates: start: 20230318, end: 20230318
  2. QUETIAPINE [Suspect]
     Active Substance: QUETIAPINE
     Indication: Drug abuse
     Dosage: ROUTE OF ADMINISTRATION: ORAL
     Route: 048
     Dates: start: 20230318, end: 20230318
  3. CLOTHIAPINE [Suspect]
     Active Substance: CLOTHIAPINE
     Indication: Intentional self-injury
     Dosage: FREQUENCY OF ADMINISTRATION: TOTAL ROUTE OF ADMINISTRATION: ORAL
     Route: 048
     Dates: start: 20230318, end: 20230318
  4. FLURAZEPAM [Suspect]
     Active Substance: FLURAZEPAM HYDROCHLORIDE
     Indication: Intentional self-injury
     Dosage: FREQUENCY OF ADMINISTRATION: TOTAL ROUTE OF ADMINISTRATION: ORAL
     Route: 048
     Dates: start: 20230318, end: 20230318

REACTIONS (3)
  - Intentional self-injury [Recovered/Resolved]
  - Sopor [Recovered/Resolved]
  - Drug abuse [Recovered/Resolved]

NARRATIVE: CASE EVENT DATE: 20230318
